FAERS Safety Report 9951158 (Version 2)
Quarter: 2014Q2

REPORT INFORMATION
  Report Type: Spontaneous
  Country: US (occurrence: US)
  Receive Date: 20140304
  Receipt Date: 20140401
  Transmission Date: 20141212
  Serious: Yes (Hospitalization, Other)
  Sender: FDA-Public Use
  Company Number: US-BAXTER-2014BAX010095

PATIENT
  Sex: Male
  Weight: 98.18 kg

DRUGS (12)
  1. DIANEAL LOW CALCIUM [Suspect]
     Indication: PERITONEAL DIALYSIS
     Route: 033
     Dates: start: 2008
  2. DIANEAL LOW CALCIUM [Suspect]
     Indication: PERITONEAL DIALYSIS
     Route: 033
     Dates: start: 2008
  3. DIANEAL LOW CALCIUM [Suspect]
     Indication: PERITONEAL DIALYSIS
     Route: 033
     Dates: start: 2008
  4. DIANEAL PD2 [Suspect]
     Indication: PERITONEAL DIALYSIS
     Dosage: FIRST FILL
     Route: 033
     Dates: start: 200806
  5. DIANEAL PD2 [Suspect]
     Dosage: FIRST FILL
     Route: 033
     Dates: start: 200806
  6. DIANEAL PD2 [Suspect]
     Indication: PERITONEAL DIALYSIS
     Dosage: FIRST FILL
     Route: 033
     Dates: start: 200806
  7. DIANEAL PD2 [Suspect]
     Route: 033
     Dates: start: 200806
  8. DIANEAL PD2 [Suspect]
     Indication: PERITONEAL DIALYSIS
     Dosage: FIRST FILL
     Route: 033
     Dates: start: 200806
  9. DIANEAL PD2 [Suspect]
     Route: 033
     Dates: start: 200806
  10. DIANEAL PD2 (ULTRABAG) [Suspect]
     Indication: PERITONEAL DIALYSIS
     Route: 033
     Dates: start: 200806
  11. DIANEAL PD2 (ULTRABAG) [Suspect]
     Indication: PERITONEAL DIALYSIS
     Route: 033
     Dates: start: 200806
  12. DIANEAL PD2 (ULTRABAG) [Suspect]
     Indication: PERITONEAL DIALYSIS
     Route: 033
     Dates: start: 200806

REACTIONS (5)
  - Oedema peripheral [Not Recovered/Not Resolved]
  - Peritoneal disorder [Not Recovered/Not Resolved]
  - Ultrafiltration failure [Not Recovered/Not Resolved]
  - Peritonitis bacterial [Recovered/Resolved]
  - Hypertension [Not Recovered/Not Resolved]
